FAERS Safety Report 4311023-5 (Version None)
Quarter: 2004Q1

REPORT INFORMATION
  Report Type: 
  Country: None (occurrence: None)
  Receive Date: 20040302
  Receipt Date: 20030615
  Transmission Date: 20041129
  Serious: Yes (Life-Threatening, Hospitalization, Other)
  Sender: FDA-Public Use
  Company Number: KII-2003-0007440

PATIENT
  Age: 41 Year
  Sex: Female

DRUGS (20)
  1. MORPHINE SULFATE [Suspect]
     Dosage: ORAL
     Route: 048
  2. VISTARIL [Suspect]
  3. BENADRYL [Suspect]
  4. METFORMIN HCL [Suspect]
  5. LIPITOR [Suspect]
  6. EFFEXOR [Suspect]
  7. LASIX [Suspect]
  8. POTASSIUM (POTASSIUM) [Suspect]
  9. NEXIUM [Suspect]
  10. PRILOSEC [Suspect]
  11. QUININE (QUININE) [Suspect]
  12. PROMETHAZINE [Suspect]
  13. KLONOPIN [Suspect]
  14. WELLBUTRIN [Suspect]
  15. CELEXA [Concomitant]
  16. REGLAN [Suspect]
  17. BACLOFEN [Suspect]
  18. ACEBUTOLOL HCL [Suspect]
  19. AMBIEN [Suspect]
  20. AMPHETAMINE SULFATE TAB [Suspect]

REACTIONS (19)
  - ARRHYTHMIA [None]
  - BLOOD BICARBONATE DECREASED [None]
  - BLOOD CALCIUM DECREASED [None]
  - BLOOD GLUCOSE INCREASED [None]
  - BLOOD POTASSIUM DECREASED [None]
  - BODY TEMPERATURE INCREASED [None]
  - DEPRESSED LEVEL OF CONSCIOUSNESS [None]
  - DRUG SCREEN POSITIVE [None]
  - ELECTROCARDIOGRAM QT CORRECTED INTERVAL PROLONGED [None]
  - NAUSEA [None]
  - PROTHROMBIN TIME PROLONGED [None]
  - RED BLOOD CELL SEDIMENTATION RATE INCREASED [None]
  - RESPIRATORY ARREST [None]
  - SYNCOPE [None]
  - TORSADE DE POINTES [None]
  - VENTRICULAR EXTRASYSTOLES [None]
  - VENTRICULAR TACHYCARDIA [None]
  - VOMITING [None]
  - WHITE BLOOD CELL COUNT INCREASED [None]
